FAERS Safety Report 8657618 (Version 4)
Quarter: 2013Q2

REPORT INFORMATION
  Report Type: Report from Study
  Country: JP (occurrence: JP)
  Receive Date: 20120710
  Receipt Date: 20130501
  Transmission Date: 20140414
  Serious: Yes (Other)
  Sender: FDA-Public Use
  Company Number: JP-VERTEX PHARMACEUTICALS INC.-AE-2012-009790

PATIENT
  Age: 55 Year
  Sex: Male

DRUGS (7)
  1. VX-950 (TELAPREVIR) [Suspect]
     Indication: CHRONIC HEPATITIS C
     Dosage: 2250 MG, QD
     Route: 048
     Dates: start: 20120508, end: 20120509
  2. VX-950 (TELAPREVIR) [Suspect]
     Dosage: 1500 MG, QD
     Route: 048
     Dates: start: 20120510, end: 20120731
  3. RIBAVIRIN [Suspect]
     Indication: CHRONIC HEPATITIS C
     Dosage: 800 MG, QD
     Route: 048
     Dates: start: 20120508, end: 20121022
  4. PEGINTERFERON ALFA-2B [Suspect]
     Indication: CHRONIC HEPATITIS C
     Dosage: 80 ?G, WEEK
     Route: 048
     Dates: start: 20120508, end: 20121016
  5. AMLODIPINE [Concomitant]
     Dosage: 2.5 MG, QD
     Route: 048
  6. AMLODIPINE [Concomitant]
     Route: 048
  7. SALOBEL [Concomitant]
     Dosage: 200 MG, QD
     Route: 048
     Dates: end: 20120813

REACTIONS (1)
  - Drug eruption [Recovered/Resolved]
